FAERS Safety Report 10717379 (Version 1)
Quarter: 2015Q1

REPORT INFORMATION
  Report Type: Report from Study
  Country: US (occurrence: US)
  Receive Date: 20150116
  Receipt Date: 20150116
  Transmission Date: 20150721
  Serious: Yes (Hospitalization)
  Sender: FDA-Public Use
  Company Number: US-BAYER-2015-000189

PATIENT
  Age: 55 Year
  Sex: Male

DRUGS (1)
  1. STIVARGA [Suspect]
     Active Substance: REGORAFENIB
     Indication: RECTAL CANCER
     Dosage: 120 MG, QD
     Route: 048
     Dates: start: 20141205, end: 20141230

REACTIONS (8)
  - Asthenia [None]
  - Fatigue [None]
  - Dizziness postural [None]
  - Hepatic function abnormal [Not Recovered/Not Resolved]
  - Lethargy [None]
  - Ammonia increased [Not Recovered/Not Resolved]
  - Tremor [None]
  - Disorientation [None]

NARRATIVE: CASE EVENT DATE: 20141228
